FAERS Safety Report 22226677 (Version 3)
Quarter: 2023Q2

REPORT INFORMATION
  Report Type: Spontaneous
  Country: US (occurrence: None)
  Receive Date: 20230419
  Receipt Date: 20230628
  Transmission Date: 20230722
  Serious: No
  Sender: FDA-Public Use
  Company Number: 2023A074153

PATIENT
  Sex: Female
  Weight: 68 kg

DRUGS (2)
  1. BYDUREON BCISE [Suspect]
     Active Substance: EXENATIDE
     Indication: Type 2 diabetes mellitus
     Route: 058
  2. INSULIN NOS [Concomitant]
     Active Substance: INSULIN NOS

REACTIONS (5)
  - Injection site discharge [Unknown]
  - Incorrect dose administered by device [Unknown]
  - Wrong technique in device usage process [Unknown]
  - Device use issue [Unknown]
  - Device leakage [Unknown]
